FAERS Safety Report 5306412-6 (Version None)
Quarter: 2007Q2

REPORT INFORMATION
  Report Type: 
  Country: None (occurrence: None)
  Receive Date: 20070419
  Receipt Date: 20070410
  Transmission Date: 20071010
  Serious: Yes (Death, Life-Threatening, Hospitalization, Disabling)
  Sender: FDA-Public Use
  Company Number: OSCN-GE-0704S-0166

PATIENT
  Age: 60 Year
  Sex: Male
  Weight: 84 kg

DRUGS (4)
  1. OMNISCAN [Suspect]
     Indication: CAROTID ARTERY STENOSIS
     Dosage: SEE IMAGE
     Route: 042
     Dates: start: 20050718, end: 20050718
  2. OMNISCAN [Suspect]
     Indication: PERIPHERAL ARTERIAL OCCLUSIVE DISEASE
     Dosage: SEE IMAGE
     Route: 042
     Dates: start: 20050718, end: 20050718
  3. OMNISCAN [Suspect]
     Indication: CAROTID ARTERY STENOSIS
     Dosage: SEE IMAGE
     Route: 042
     Dates: start: 20050720, end: 20050720
  4. OMNISCAN [Suspect]
     Indication: PERIPHERAL ARTERIAL OCCLUSIVE DISEASE
     Dosage: SEE IMAGE
     Route: 042
     Dates: start: 20050720, end: 20050720

REACTIONS (6)
  - C-REACTIVE PROTEIN INCREASED [None]
  - CHEST PAIN [None]
  - JOINT CONTRACTURE [None]
  - LEUKOCYTOSIS [None]
  - MALAISE [None]
  - SKIN DISORDER [None]
